FAERS Safety Report 16654245 (Version 5)
Quarter: 2020Q4

REPORT INFORMATION
  Report Type: Spontaneous
  Country: US (occurrence: US)
  Receive Date: 20190731
  Receipt Date: 20201028
  Transmission Date: 20210113
  Serious: Yes (Other)
  Sender: FDA-Public Use
  Company Number: US-GILEAD-2019-0420395

PATIENT
  Age: 38 Year
  Sex: Male
  Weight: 70.3 kg

DRUGS (36)
  1. XANAX [Concomitant]
     Active Substance: ALPRAZOLAM
  2. CIPROFLOXACIN. [Concomitant]
     Active Substance: CIPROFLOXACIN
  3. LOSARTAN/HCTZ [Concomitant]
     Active Substance: HYDROCHLOROTHIAZIDE\LOSARTAN
  4. TRAZODONE [Concomitant]
     Active Substance: TRAZODONE HYDROCHLORIDE
  5. HYDROCODONE BITARTRATE AND ACETAMINOPHEN [Concomitant]
     Active Substance: ACETAMINOPHEN\HYDROCODONE BITARTRATE
  6. AMOXICILLIN. [Concomitant]
     Active Substance: AMOXICILLIN
  7. ATRIPLA [Suspect]
     Active Substance: EFAVIRENZ\EMTRICITABINE\TENOFOVIR DISOPROXIL FUMARATE
     Indication: HIV INFECTION
     Dosage: 1 DOSAGE FORM, QD
     Route: 048
     Dates: start: 201206, end: 201610
  8. ODEFSEY [Concomitant]
     Active Substance: EMTRICITABINE\RILPIVIRINE HYDROCHLORIDE\TENOFOVIR ALAFENAMIDE FUMARATE
  9. VIVAX [ACICLOVIR] [Concomitant]
  10. CEPHALEXIN HCL [Concomitant]
     Active Substance: CEPHALEXIN HYDROCHLORIDE
  11. AMOXI CLAV [Concomitant]
     Active Substance: AMOXICILLIN\CLAVULANATE POTASSIUM
  12. AZITHROMYCIN ANHYDROUS. [Concomitant]
     Active Substance: AZITHROMYCIN ANHYDROUS
  13. VIREAD [Suspect]
     Active Substance: TENOFOVIR DISOPROXIL FUMARATE
     Indication: HIV INFECTION
     Dosage: UNK
     Route: 048
     Dates: start: 200205, end: 201206
  14. METRONIDAZOLE. [Concomitant]
     Active Substance: METRONIDAZOLE
  15. BENZONATATE. [Concomitant]
     Active Substance: BENZONATATE
  16. DOXYCYCLINE HCL [Concomitant]
     Active Substance: DOXYCYCLINE HYDROCHLORIDE
  17. LAMOTRIGINE. [Concomitant]
     Active Substance: LAMOTRIGINE
     Dosage: UNK
     Dates: start: 2010
  18. BUPROPION. [Concomitant]
     Active Substance: BUPROPION
     Dosage: UNK
     Dates: start: 2010
  19. PROMETHAZINE - CODEINE [Concomitant]
     Active Substance: CODEINE\PROMETHAZINE
  20. ZOLPIDEM [Concomitant]
     Active Substance: ZOLPIDEM TARTRATE
  21. OMEPRAZOLE. [Concomitant]
     Active Substance: OMEPRAZOLE
  22. IBUPROFEN. [Concomitant]
     Active Substance: IBUPROFEN
  23. MORPHINE [Concomitant]
     Active Substance: MORPHINE
  24. CLOTRIMAZOLE / BETAMETH [Concomitant]
     Active Substance: BETAMETHASONE DIPROPIONATE\CLOTRIMAZOLE
  25. ASPIRIN (E.C.) [Concomitant]
     Active Substance: ASPIRIN
  26. OLANZAPINE. [Concomitant]
     Active Substance: OLANZAPINE
  27. EPIVIR [Concomitant]
     Active Substance: LAMIVUDINE
  28. ONDANSETRON [Concomitant]
     Active Substance: ONDANSETRON
  29. MUPIROCIN. [Concomitant]
     Active Substance: MUPIROCIN
  30. LEVOFLOXACIN. [Concomitant]
     Active Substance: LEVOFLOXACIN
  31. AMBIEN [Concomitant]
     Active Substance: ZOLPIDEM TARTRATE
  32. SUSTIVA [Concomitant]
     Active Substance: EFAVIRENZ
  33. SULFAMETH/TRIMETH [Concomitant]
     Active Substance: SULFAMETHOXAZOLE\TRIMETHOPRIM
  34. SYMBICORT [Concomitant]
     Active Substance: BUDESONIDE\FORMOTEROL FUMARATE DIHYDRATE
  35. VIRTUSSIN AC [Concomitant]
     Active Substance: CODEINE PHOSPHATE\GUAIFENESIN
  36. ALENDRONATE [Concomitant]
     Active Substance: ALENDRONATE SODIUM

REACTIONS (10)
  - Bone density decreased [Unknown]
  - Anxiety [Not Recovered/Not Resolved]
  - Osteoporotic fracture [Unknown]
  - Depression [Not Recovered/Not Resolved]
  - Pain [Not Recovered/Not Resolved]
  - Emotional distress [Not Recovered/Not Resolved]
  - Renal failure [Unknown]
  - Economic problem [Unknown]
  - Osteopenia [Not Recovered/Not Resolved]
  - Anhedonia [Unknown]

NARRATIVE: CASE EVENT DATE: 2010
